FAERS Safety Report 25623002 (Version 1)
Quarter: 2025Q3

REPORT INFORMATION
  Report Type: Spontaneous
  Country: US (occurrence: US)
  Receive Date: 20250730
  Receipt Date: 20250730
  Transmission Date: 20251021
  Serious: No
  Sender: GALPHARM INTERNATIONAL
  Company Number: US-PERRIGO-25US002680

PATIENT
  Age: 86 Year
  Sex: Male
  Weight: 86.168 kg

DRUGS (1)
  1. LORATADINE [Suspect]
     Active Substance: LORATADINE
     Indication: Wrong product administered
     Route: 048
     Dates: start: 20250225, end: 20250225

REACTIONS (2)
  - Accidental overdose [Recovered/Resolved]
  - Wrong product administered [Recovered/Resolved]

NARRATIVE: CASE EVENT DATE: 20250225
